FAERS Safety Report 4905356-9 (Version None)
Quarter: 2006Q1

REPORT INFORMATION
  Report Type: 
  Country: None (occurrence: None)
  Receive Date: 20060207
  Receipt Date: 20060207
  Transmission Date: 20060701
  Serious: Yes (Other)
  Sender: FDA-Public Use
  Company Number: None

PATIENT
  Age: 65 Year
  Sex: Male
  Weight: 65.318 kg

DRUGS (2)
  1. LEVAQUIN [Suspect]
     Indication: COUGH
     Dosage: 5 PAK 1X PER DAY 5 DAYS
     Dates: start: 20060123, end: 20060127
  2. LEVAQUIN [Suspect]
     Indication: NASOPHARYNGITIS
     Dosage: 5 PAK 1X PER DAY 5 DAYS
     Dates: start: 20060123, end: 20060127

REACTIONS (2)
  - DIFFICULTY IN WALKING [None]
  - PAIN IN EXTREMITY [None]
